FAERS Safety Report 11459859 (Version 1)
Quarter: 2015Q3

REPORT INFORMATION
  Report Type: Spontaneous
  Country: VE (occurrence: VE)
  Receive Date: 20150904
  Receipt Date: 20150904
  Transmission Date: 20151125
  Serious: Yes (Other)
  Sender: FDA-Public Use
  Company Number: VE-PFIZER INC-2015292773

PATIENT
  Age: 32 Year
  Sex: Male

DRUGS (3)
  1. METICORTEN [Concomitant]
     Active Substance: PREDNISONE
     Dosage: UNK
  2. PROVIRON /00100001/ [Concomitant]
     Dosage: UNK
  3. DOSTINEX [Suspect]
     Active Substance: CABERGOLINE
     Indication: BRAIN NEOPLASM
     Dosage: HALF A PILL, ALTERNATE DAY
     Dates: start: 2005, end: 201508

REACTIONS (3)
  - Tumour invasion [Unknown]
  - Blood prolactin increased [Unknown]
  - Condition aggravated [Unknown]
